FAERS Safety Report 9035504 (Version 1)
Quarter: 2013Q1

REPORT INFORMATION
  Report Type: Report from Study
  Country: None (occurrence: US)
  Receive Date: 20130129
  Receipt Date: 20130129
  Transmission Date: 20140127
  Serious: No
  Sender: FDA-Public Use
  Company Number: US-ABBOTT-12P-163-0908365-00

PATIENT
  Sex: 0

DRUGS (5)
  1. HUMIRA 40 MG/0.8 ML PEN [Suspect]
     Indication: PSORIATIC ARTHROPATHY
     Dates: start: 2005, end: 20120129
  2. CYMBALTA [Concomitant]
     Indication: PAIN
  3. TRAZODONE [Concomitant]
     Indication: INSOMNIA
  4. FENOFIBRATE [Concomitant]
     Indication: HIGH DENSITY LIPOPROTEIN INCREASED
  5. UNKNOWN MEDICATION [Concomitant]
     Indication: PRODUCT USED FOR UNKNOWN INDICATION

REACTIONS (4)
  - Sinusitis [Recovered/Resolved]
  - Herpes dermatitis [Not Recovered/Not Resolved]
  - Skin lesion [Not Recovered/Not Resolved]
  - Staphylococcal infection [Unknown]
